FAERS Safety Report 5527874-5 (Version None)
Quarter: 2007Q4

REPORT INFORMATION
  Report Type: 
  Country: None (occurrence: None)
  Receive Date: 20071123
  Receipt Date: 20071113
  Transmission Date: 20080405
  Serious: Yes (Other)
  Sender: FDA-Public Use
  Company Number: 2007-03381

PATIENT
  Age: 50 Year
  Sex: Male

DRUGS (4)
  1. VELCADE [Suspect]
     Indication: MULTIPLE MYELOMA
     Dosage: 1.30 MG/M2, INTRAVENOUS
     Route: 042
     Dates: start: 20070101, end: 20070101
  2. ANTIHISTAMINES [Concomitant]
  3. CORTICOSTEROIDS [Concomitant]
  4. ANTIBIOTICS [Concomitant]

REACTIONS (4)
  - HYPOTENSION [None]
  - PYREXIA [None]
  - TREMOR [None]
  - UPPER RESPIRATORY TRACT INFECTION [None]
